FAERS Safety Report 5205539-7 (Version None)
Quarter: 2006Q4

REPORT INFORMATION
  Report Type: 
  Country: None (occurrence: None)
  Receive Date: 20061027
  Receipt Date: 20060830
  Transmission Date: 20070319
  Serious: No
  Sender: FDA-Public Use
  Company Number: 200613033US

PATIENT
  Age: 40 Year
  Sex: Male
  Weight: 55.45 kg

DRUGS (3)
  1. KETEK [Suspect]
     Indication: SINUSITIS
     Dosage: 800 MG QD PO
     Route: 048
     Dates: start: 20051027, end: 20051001
  2. ALCOHOL [Suspect]
     Dosage: QD PO
     Route: 048
     Dates: end: 20060301
  3. ALCOHOL [Suspect]
     Dosage: QD PO
     Route: 048
     Dates: start: 20060301

REACTIONS (18)
  - ABDOMINAL PAIN UPPER [None]
  - ALANINE AMINOTRANSFERASE INCREASED [None]
  - ASPARTATE AMINOTRANSFERASE INCREASED [None]
  - BARRETT'S OESOPHAGUS [None]
  - BILIRUBIN CONJUGATED INCREASED [None]
  - BLOOD CHOLESTEROL INCREASED [None]
  - CARBON DIOXIDE DECREASED [None]
  - GAMMA-GLUTAMYLTRANSFERASE INCREASED [None]
  - GASTRITIS [None]
  - HEPATIC ENZYME INCREASED [None]
  - HEPATIC STEATOSIS [None]
  - MALAISE [None]
  - MEAN PLATELET VOLUME DECREASED [None]
  - NAUSEA [None]
  - REFLUX OESOPHAGITIS [None]
  - SMOOTH MUSCLE ANTIBODY POSITIVE [None]
  - TRANSFERRIN SATURATION INCREASED [None]
  - VOMITING [None]
